FAERS Safety Report 23262763 (Version 2)
Quarter: 2023Q4

REPORT INFORMATION
  Report Type: Spontaneous
  Country: BE (occurrence: BE)
  Receive Date: 20231205
  Receipt Date: 20231212
  Transmission Date: 20240109
  Serious: Yes (Hospitalization, Other)
  Sender: FDA-Public Use
  Company Number: BE-MYLANLABS-2023M1120095

PATIENT
  Age: 64 Year
  Sex: Male

DRUGS (28)
  1. AZITHROMYCIN [Suspect]
     Active Substance: AZITHROMYCIN
     Indication: Cryptosporidiosis infection
     Dosage: 500 MILLIGRAM, QD
     Route: 065
  2. MELPHALAN [Suspect]
     Active Substance: MELPHALAN
     Indication: Bone marrow conditioning regimen
     Dosage: UNK
     Route: 065
  3. MELPHALAN [Suspect]
     Active Substance: MELPHALAN
     Indication: Immunosuppressant drug therapy
  4. FLUDARABINE PHOSPHATE [Suspect]
     Active Substance: FLUDARABINE PHOSPHATE
     Indication: Bone marrow conditioning regimen
     Dosage: UNK
     Route: 065
  5. FLUDARABINE PHOSPHATE [Suspect]
     Active Substance: FLUDARABINE PHOSPHATE
     Indication: Immunosuppressant drug therapy
  6. PAROMOMYCIN [Suspect]
     Active Substance: PAROMOMYCIN
     Indication: Cryptosporidiosis infection
     Dosage: 500 MILLIGRAM, QID (FOUR TIMES A DAY)
     Route: 065
  7. NITAZOXANIDE [Suspect]
     Active Substance: NITAZOXANIDE
     Indication: Diarrhoea
     Dosage: 1000 MILLIGRAM, BID
     Route: 065
  8. METHOTREXATE [Suspect]
     Active Substance: METHOTREXATE
     Indication: Diffuse large B-cell lymphoma
     Dosage: RECEIVED UNDER SALVAGE THERAPY
     Route: 065
  9. METHOTREXATE [Suspect]
     Active Substance: METHOTREXATE
     Indication: Immunosuppressant drug therapy
  10. ETANERCEPT [Suspect]
     Active Substance: ETANERCEPT
     Indication: Graft versus host disease
     Dosage: 50 MILLIGRAM, QD
     Route: 065
     Dates: start: 20200529, end: 20200604
  11. ETANERCEPT [Suspect]
     Active Substance: ETANERCEPT
     Indication: Immunosuppressant drug therapy
  12. ETANERCEPT [Suspect]
     Active Substance: ETANERCEPT
     Indication: Prophylaxis against graft versus host disease
  13. Ganciclovir accord [Concomitant]
     Indication: Cytomegalovirus infection reactivation
     Dosage: UNK
     Route: 065
  14. VALACYCLOVIR HYDROCHLORIDE [Concomitant]
     Active Substance: VALACYCLOVIR HYDROCHLORIDE
     Indication: Cytomegalovirus infection reactivation
     Dosage: UNK
     Route: 065
  15. THYMOGLOBULIN [Concomitant]
     Active Substance: LAPINE T-LYMPHOCYTE IMMUNE GLOBULIN
     Indication: Prophylaxis against graft versus host disease
     Dosage: RECEIVED ON DAY 83 OF THE ALLO-SCT
     Route: 065
     Dates: start: 20200313, end: 20200604
  16. THYMOGLOBULIN [Concomitant]
     Active Substance: LAPINE T-LYMPHOCYTE IMMUNE GLOBULIN
     Indication: Immunosuppressant drug therapy
  17. EVEROLIMUS [Concomitant]
     Active Substance: EVEROLIMUS
     Indication: Graft versus host disease
     Dosage: 0.5 MILLIGRAM, QD (ONCE A DAY)
     Route: 065
  18. EVEROLIMUS [Concomitant]
     Active Substance: EVEROLIMUS
     Indication: Immunosuppressant drug therapy
     Dosage: 1 MILLIGRAM, QD
     Route: 065
     Dates: start: 20200705, end: 20201108
  19. EVEROLIMUS [Concomitant]
     Active Substance: EVEROLIMUS
     Indication: Prophylaxis against graft versus host disease
  20. TACROLIMUS [Concomitant]
     Active Substance: TACROLIMUS
     Indication: Prophylaxis against graft versus host disease
     Dosage: UNK
     Route: 065
     Dates: start: 20200313, end: 20201208
  21. TACROLIMUS [Concomitant]
     Active Substance: TACROLIMUS
     Indication: Immunosuppressant drug therapy
  22. MYCOPHENOLATE MOFETIL [Concomitant]
     Active Substance: MYCOPHENOLATE MOFETIL
     Indication: Prophylaxis against graft versus host disease
     Dosage: UNK
     Route: 065
     Dates: start: 20200313, end: 20200417
  23. MYCOPHENOLATE MOFETIL [Concomitant]
     Active Substance: MYCOPHENOLATE MOFETIL
     Indication: Immunosuppressant drug therapy
  24. METHYLPREDNISOLONE [Concomitant]
     Active Substance: METHYLPREDNISOLONE
     Indication: Prophylaxis against graft versus host disease
     Dosage: UNK 2 MILLIGRAM /KILLOGRAM , QD
     Route: 065
     Dates: start: 20200522, end: 20200604
  25. METHYLPREDNISOLONE [Concomitant]
     Active Substance: METHYLPREDNISOLONE
     Indication: Immunosuppressant drug therapy
     Dosage: 4 MILLIGRAM, QD
     Route: 065
     Dates: start: 20200617, end: 20200808
  26. METHYLPREDNISOLONE [Concomitant]
     Active Substance: METHYLPREDNISOLONE
     Dosage: 2 MILLIGRAM, QD
     Route: 065
     Dates: start: 20200808, end: 202009
  27. BECLOMETHASONE DIPROPIONATE [Concomitant]
     Active Substance: BECLOMETHASONE DIPROPIONATE
     Indication: Prophylaxis against graft versus host disease
     Dosage: RESTART DOSE UNKNOWN
     Route: 061
     Dates: start: 20200522, end: 20200604
  28. BECLOMETHASONE DIPROPIONATE [Concomitant]
     Active Substance: BECLOMETHASONE DIPROPIONATE
     Indication: Immunosuppressant drug therapy

REACTIONS (5)
  - Colitis [Recovered/Resolved]
  - Cryptosporidiosis infection [Recovered/Resolved]
  - Disease recurrence [Recovered/Resolved]
  - Drug ineffective for unapproved indication [Recovered/Resolved]
  - Off label use [Unknown]

NARRATIVE: CASE EVENT DATE: 20200529
